FAERS Safety Report 8012597-3 (Version None)
Quarter: 2011Q4

REPORT INFORMATION
  Report Type: 
  Country: None (occurrence: None)
  Receive Date: 20111229
  Receipt Date: 20111219
  Transmission Date: 20120403
  Serious: Yes (Hospitalization)
  Sender: FDA-Public Use
  Company Number: US-BAYER-2011-107390

PATIENT
  Age: 18 Year
  Sex: Female
  Weight: 65.76 kg

DRUGS (6)
  1. VALTREX [Concomitant]
     Indication: HERPES VIRUS INFECTION
     Dosage: 1 MG, QD
  2. YASMIN [Suspect]
     Indication: MENSTRUATION IRREGULAR
     Dosage: UNK
     Dates: start: 20060501
  3. BACTROBAN [Concomitant]
     Dosage: UNK
     Dates: start: 20071015
  4. YAZ [Suspect]
     Dosage: UNK
     Dates: start: 20070101
  5. METHYLPREDNISOLONE [Concomitant]
     Dosage: UNK
     Route: 048
     Dates: start: 20071015
  6. YAZ [Suspect]
     Indication: MENSTRUATION IRREGULAR
     Dosage: UNK
     Dates: start: 20061001, end: 20071101

REACTIONS (7)
  - PAIN [None]
  - ABDOMINAL PAIN [None]
  - FOCAL NODULAR HYPERPLASIA [None]
  - HEPATIC NEOPLASM [None]
  - EMOTIONAL DISTRESS [None]
  - CHOLESTEROSIS [None]
  - INJURY [None]
